FAERS Safety Report 24577995 (Version 1)
Quarter: 2024Q4

REPORT INFORMATION
  Report Type: Spontaneous
  Country: CN (occurrence: CN)
  Receive Date: 20241104
  Receipt Date: 20241104
  Transmission Date: 20250115
  Serious: Yes (Hospitalization, Other)
  Sender: BEIGENE
  Company Number: CN-BEIGENE-BGN-2024-017228

PATIENT

DRUGS (7)
  1. TISLELIZUMAB [Suspect]
     Active Substance: TISLELIZUMAB
     Indication: Small cell lung cancer
     Dosage: UNK
     Dates: start: 202311
  2. TISLELIZUMAB [Suspect]
     Active Substance: TISLELIZUMAB
     Dosage: 200 MILLIGRAM
     Dates: start: 20240812, end: 20241027
  3. ETOPOSIDE [Concomitant]
     Active Substance: ETOPOSIDE
     Indication: Small cell lung cancer
     Dosage: 150 MILLIGRAM D1-3
     Dates: start: 20231122
  4. ETOPOSIDE [Concomitant]
     Active Substance: ETOPOSIDE
     Dosage: 120 MILLIGRAM D1-3
     Dates: start: 20231220
  5. NEDAPLATIN [Concomitant]
     Active Substance: NEDAPLATIN
     Indication: Small cell lung cancer
     Dosage: 35 MILLIGRAM D1-3
     Dates: start: 20231122
  6. CARBOPLATIN [Concomitant]
     Active Substance: CARBOPLATIN
     Indication: Small cell lung cancer
     Dosage: 300 MILLIGRAM D1
     Dates: start: 20231220
  7. SURUFATINIB [Concomitant]
     Active Substance: SURUFATINIB

REACTIONS (21)
  - Arthralgia [Unknown]
  - Leukodystrophy [Unknown]
  - Cerebral atrophy [Unknown]
  - Alveolar lung disease [Unknown]
  - Aortic arteriosclerosis [Unknown]
  - Arteriosclerosis coronary artery [Unknown]
  - Acute left ventricular failure [Unknown]
  - Pneumonia [Unknown]
  - Chest discomfort [Recovering/Resolving]
  - Dyspnoea [Recovering/Resolving]
  - Oxygen saturation decreased [Unknown]
  - Haemoptysis [Recovered/Resolved]
  - Asthenia [Unknown]
  - Decreased appetite [Unknown]
  - Osteoarthritis [Unknown]
  - Tendon injury [Unknown]
  - Joint effusion [Unknown]
  - Tendon sheath effusion [Unknown]
  - Pulmonary mass [Unknown]
  - Emphysema [Unknown]
  - Rib fracture [Unknown]

NARRATIVE: CASE EVENT DATE: 20231123
